FAERS Safety Report 9308952 (Version 1)
Quarter: 2013Q2

REPORT INFORMATION
  Report Type: Spontaneous
  Country: BR (occurrence: BR)
  Receive Date: 20130524
  Receipt Date: 20130524
  Transmission Date: 20140414
  Serious: Yes (Hospitalization, Other)
  Sender: FDA-Public Use
  Company Number: BR-ASTRAZENECA-2013SE33467

PATIENT
  Age: 68 Year
  Sex: Female
  Weight: 62 kg

DRUGS (9)
  1. CRESTOR [Suspect]
     Indication: BLOOD CHOLESTEROL INCREASED
     Route: 048
     Dates: start: 2010, end: 2011
  2. ONGLYZA [Suspect]
     Indication: DIABETES MELLITUS
     Route: 048
  3. DIOVAN [Concomitant]
     Indication: HYPERTENSION
  4. ROXFLAN [Concomitant]
     Indication: HYPERTENSION
  5. GLIFAGE [Concomitant]
     Indication: DIABETES MELLITUS
  6. PANTOPRAZOL [Concomitant]
     Indication: PROPHYLAXIS AGAINST GASTROINTESTINAL ULCER
  7. ASPIRINA PREVENT [Concomitant]
  8. SIMVASTATIN [Concomitant]
     Indication: BLOOD CHOLESTEROL INCREASED
     Dates: start: 2011, end: 2011
  9. SYNTHROID [Concomitant]
     Indication: THYROID NODULE REMOVAL
     Dates: start: 201206

REACTIONS (4)
  - Coronary artery occlusion [Recovered/Resolved]
  - Thyroid neoplasm [Recovered/Resolved]
  - Blood cholesterol increased [Unknown]
  - Constipation [Recovered/Resolved]
